FAERS Safety Report 23258782 (Version 1)
Quarter: 2023Q4

REPORT INFORMATION
  Report Type: Spontaneous
  Country: US (occurrence: None)
  Receive Date: 20231203
  Receipt Date: 20231203
  Transmission Date: 20240109
  Serious: Yes (unspecified)
  Sender: FDA-Public Use
  Company Number: None

PATIENT
  Sex: Female

DRUGS (1)
  1. MONISTAT 7 [Suspect]
     Active Substance: MICONAZOLE NITRATE
     Dates: start: 20231202, end: 20231203

REACTIONS (3)
  - Application site pain [None]
  - Application site pruritus [None]
  - Application site pain [None]

NARRATIVE: CASE EVENT DATE: 20231203
